APPROVED DRUG PRODUCT: PENECORT
Active Ingredient: HYDROCORTISONE
Strength: 1%
Dosage Form/Route: CREAM;TOPICAL
Application: A088216 | Product #001
Applicant: ALLERGAN HERBERT DIV ALLERGAN INC
Approved: Jun 6, 1984 | RLD: No | RS: No | Type: DISCN